FAERS Safety Report 5922016-6 (Version None)
Quarter: 2008Q4

REPORT INFORMATION
  Report Type: 
  Country: None (occurrence: None)
  Receive Date: 20081017
  Receipt Date: 20081014
  Transmission Date: 20090506
  Serious: Yes (Hospitalization)
  Sender: FDA-Public Use
  Company Number: A0751808A

PATIENT
  Sex: Female

DRUGS (7)
  1. IMITREX [Suspect]
     Indication: MIGRAINE
     Dosage: 1TAB AS REQUIRED
     Route: 048
  2. LOPRESSOR [Concomitant]
  3. SYNTHROID [Concomitant]
  4. PREMARIN [Concomitant]
  5. LAMICTAL [Concomitant]
  6. EFFEXOR [Concomitant]
  7. VALIUM [Concomitant]

REACTIONS (1)
  - OVERDOSE [None]
